FAERS Safety Report 6784736-3 (Version None)
Quarter: 2010Q2

REPORT INFORMATION
  Report Type: 
  Country: None (occurrence: None)
  Receive Date: 20100622
  Receipt Date: 20100610
  Transmission Date: 20101027
  Serious: Yes (Other)
  Sender: FDA-Public Use
  Company Number: JP-PFIZER INC-2010074464

PATIENT
  Age: 4 Year
  Sex: Male

DRUGS (5)
  1. IDARUBICIN HCL [Suspect]
     Indication: ACUTE MYELOID LEUKAEMIA
     Dosage: 10 MG/M2, DAY 1 AND 4
     Route: 041
  2. CYTARABINE [Suspect]
     Indication: ACUTE MYELOID LEUKAEMIA
     Dosage: 3 G/M2, DAY 1-3 (EVERY 12 HOURS)
     Route: 041
  3. ETOPOSIDE [Suspect]
     Indication: ACUTE MYELOID LEUKAEMIA
     Dosage: 100 MG/M2, DAY 1-5
     Route: 041
  4. METHOTREXATE [Suspect]
     Indication: ACUTE MYELOID LEUKAEMIA
     Dosage: 12 MG, DAY 0
     Route: 037
  5. HYDROCORTISONE [Suspect]
     Indication: ACUTE MYELOID LEUKAEMIA
     Dosage: 30 MG, DAY 0
     Route: 037

REACTIONS (2)
  - HYPONATRAEMIA [None]
  - TUMOUR LYSIS SYNDROME [None]
